FAERS Safety Report 21510510 (Version 1)
Quarter: 2022Q4

REPORT INFORMATION
  Report Type: Report from Study
  Country: US (occurrence: US)
  Receive Date: 20221026
  Receipt Date: 20221026
  Transmission Date: 20230112
  Serious: Yes (Other)
  Sender: FDA-Public Use
  Company Number: US-JAZZ-2022-US-031490

PATIENT
  Sex: Female

DRUGS (7)
  1. XYREM [Suspect]
     Active Substance: SODIUM OXYBATE
     Indication: Narcolepsy
     Dosage: UNK
     Route: 048
  2. XYREM [Suspect]
     Active Substance: SODIUM OXYBATE
     Indication: Cataplexy
  3. ADDERALL [Suspect]
     Active Substance: AMPHETAMINE ASPARTATE\AMPHETAMINE SULFATE\DEXTROAMPHETAMINE SACCHARATE\DEXTROAMPHETAMINE SULFATE
  4. SYMBICORT [Concomitant]
     Active Substance: BUDESONIDE\FORMOTEROL FUMARATE DIHYDRATE
     Indication: Product used for unknown indication
     Dosage: 0000
     Dates: start: 20150801
  5. MULTI DAY PLUS MINERALS [Concomitant]
     Indication: Product used for unknown indication
     Dosage: 0000
     Dates: start: 20160316
  6. MELATONIIN [Concomitant]
     Indication: Product used for unknown indication
     Dosage: 0000
     Dates: start: 20170119
  7. CLONIXIN LYSINE [Concomitant]
     Active Substance: CLONIXIN LYSINE
     Indication: Product used for unknown indication
     Dosage: 0000
     Dates: start: 20221001

REACTIONS (13)
  - Hysterectomy [Unknown]
  - Mast cell activation syndrome [Unknown]
  - Decreased appetite [Unknown]
  - Cardiac disorder [Unknown]
  - Somnambulism [Unknown]
  - Agitation [Unknown]
  - Teratoma [Unknown]
  - Hypersensitivity [Unknown]
  - Back injury [Unknown]
  - Connective tissue disorder [Unknown]
  - Reaction to sweetener [Unknown]
  - Parasomnia [Unknown]
  - Depressed mood [Unknown]
